FAERS Safety Report 16116933 (Version 2)
Quarter: 2019Q3

REPORT INFORMATION
  Report Type: Spontaneous
  Country: US (occurrence: US)
  Receive Date: 20190326
  Receipt Date: 20190919
  Transmission Date: 20191004
  Serious: No
  Sender: FDA-Public Use
  Company Number: US-PFIZER INC-2019125462

PATIENT
  Age: 39 Year
  Sex: Female

DRUGS (2)
  1. XELJANZ XR [Suspect]
     Active Substance: TOFACITINIB CITRATE
     Dosage: 11 MG, DAILY (TAKE ONE (1) TABLET BY MOUTH ONE TIME DAILY)
     Route: 048
     Dates: start: 20180404
  2. XELJANZ XR [Suspect]
     Active Substance: TOFACITINIB CITRATE
     Dosage: 11 MG, DAILY (TAKE ONE (1) TABLET BY MOUTH ONE TIME DAILY)
     Route: 048
     Dates: start: 20190307

REACTIONS (2)
  - Nasopharyngitis [Unknown]
  - Influenza [Recovered/Resolved]
